FAERS Safety Report 10053032 (Version 1)
Quarter: 2014Q1

REPORT INFORMATION
  Report Type: Spontaneous
  Country: GR (occurrence: None)
  Receive Date: 20140331
  Receipt Date: 20140331
  Transmission Date: 20141002
  Serious: Yes (Other)
  Sender: FDA-Public Use
  Company Number: 2014P1002393

PATIENT
  Sex: 0

DRUGS (1)
  1. HYDROCORTISONE [Suspect]
     Indication: MENINGITIS BACTERIAL

REACTIONS (4)
  - Hydrocephalus [None]
  - Convulsion [None]
  - Deafness [None]
  - CNS ventriculitis [None]
